FAERS Safety Report 8599284 (Version 2)
Quarter: 2012Q4

REPORT INFORMATION
  Report Type: Report from Study
  Country: US (occurrence: US)
  Receive Date: 20120605
  Receipt Date: 20121017
  Transmission Date: 20130627
  Serious: No
  Sender: FDA-Public Use
  Company Number: US-ROCHE-1074806

PATIENT
  Age: 76 None
  Sex: Male
  Weight: 79.45 kg

DRUGS (1)
  1. CAPECITABINE [Suspect]
     Indication: COLORECTAL CANCER METASTATIC
     Route: 048
     Dates: start: 201103

REACTIONS (2)
  - Intestinal obstruction [Recovered/Resolved]
  - Pruritus [Not Recovered/Not Resolved]
